FAERS Safety Report 19958220 (Version 1)
Quarter: 2021Q4

REPORT INFORMATION
  Report Type: Spontaneous
  Country: CN (occurrence: CN)
  Receive Date: 20211015
  Receipt Date: 20211015
  Transmission Date: 20220303
  Serious: Yes (Hospitalization)
  Sender: FDA-Public Use
  Company Number: CN-BAXTER-2021BAX026922

PATIENT
  Age: 53 Year
  Sex: Male
  Weight: 72.6 kg

DRUGS (23)
  1. CYCLOPHOSPHAMIDE [Suspect]
     Active Substance: CYCLOPHOSPHAMIDE
     Indication: Diffuse large B-cell lymphoma
     Dosage: FIRST CYCLE
     Route: 041
  2. CYCLOPHOSPHAMIDE [Suspect]
     Active Substance: CYCLOPHOSPHAMIDE
     Dosage: CYCLOPHOSPHAMIDE FOR INJECTION 1G + 0.9% SODIUM CHLORIDE INJECTION 500ML, SECOND CYCLE, DAY 1
     Route: 041
     Dates: start: 20200809, end: 20200809
  3. CYCLOPHOSPHAMIDE [Suspect]
     Active Substance: CYCLOPHOSPHAMIDE
     Dosage: DOSE REINTRODUCED.
     Route: 041
  4. SODIUM CHLORIDE [Suspect]
     Active Substance: SODIUM CHLORIDE
     Indication: Medication dilution
     Dosage: CYCLOPHOSPHAMIDE FOR INJECTION 1G + 0.9% SODIUM CHLORIDE INJECTION 500ML, SECOND CYCLE, DAY 1
     Route: 041
     Dates: start: 20200809, end: 20200809
  5. SODIUM CHLORIDE [Suspect]
     Active Substance: SODIUM CHLORIDE
     Dosage: VINORELBINE TARTRATE INJECTION 50MG + 0.9% SODIUM CHLORIDE INJECTION 125ML, SECOND CYCLE, DAY 2
     Route: 041
     Dates: start: 20200809, end: 20200809
  6. SODIUM CHLORIDE [Suspect]
     Active Substance: SODIUM CHLORIDE
     Dosage: DOSE REINTRODUCED WITH CYCLOPHOSPHAMIDE FOR INJECTION
     Route: 041
  7. SODIUM CHLORIDE [Suspect]
     Active Substance: SODIUM CHLORIDE
     Dosage: DOSE REINTRODUCED WITH VINORELBINE TARTRATE INJECTION
     Route: 041
  8. DEXTROSE [Suspect]
     Active Substance: DEXTROSE
     Indication: Medication dilution
     Dosage: PIRARUBICIN HYDROCHLORIDE INJECTION 40MG + 5% GLUCOSE INJECTION 100ML, SECOND CYCLE, DAY 1
     Route: 041
     Dates: start: 20200809, end: 20200809
  9. DEXTROSE [Suspect]
     Active Substance: DEXTROSE
     Dosage: RITUXIMAB INJECTION 600MG + 5% GLUCOSE INJECTION 600ML, SECOND CYCLE, DAY 1
     Route: 041
     Dates: start: 20200809, end: 20200809
  10. DEXTROSE [Suspect]
     Active Substance: DEXTROSE
     Dosage: DOSE REINTRODUCED WITH PIRARUBICIN HYDROCHLORIDE INJECTION
     Route: 041
  11. DEXTROSE [Suspect]
     Active Substance: DEXTROSE
     Dosage: DOSE REINTRODUCED WITH RITUXIMAB INJECTION
     Route: 041
  12. RITUXIMAB [Suspect]
     Active Substance: RITUXIMAB
     Indication: Diffuse large B-cell lymphoma
     Dosage: FIRST CYCLE
     Route: 041
  13. RITUXIMAB [Suspect]
     Active Substance: RITUXIMAB
     Dosage: RITUXIMAB INJECTION 600MG + 5% GLUCOSE INJECTION 600ML, SECOND CYCLE, DAY1
     Route: 041
     Dates: start: 20200809, end: 20200809
  14. RITUXIMAB [Suspect]
     Active Substance: RITUXIMAB
     Dosage: DOSE REINTRODUCED
     Route: 041
  15. PREDNISONE ACETATE [Suspect]
     Active Substance: PREDNISONE ACETATE
     Indication: Diffuse large B-cell lymphoma
     Dosage: FIRST CYCLE
     Route: 048
  16. PREDNISONE ACETATE [Suspect]
     Active Substance: PREDNISONE ACETATE
     Dosage: SECOND CYCLE, DAY 1 TO DAY 5
     Route: 048
     Dates: start: 20200809, end: 20200813
  17. PREDNISONE ACETATE [Suspect]
     Active Substance: PREDNISONE ACETATE
     Dosage: DOSE REINTRODUCED
     Route: 048
  18. VINORELBINE [Suspect]
     Active Substance: VINORELBINE TARTRATE
     Indication: Diffuse large B-cell lymphoma
     Dosage: FIRST CYCLE
     Route: 041
  19. VINORELBINE [Suspect]
     Active Substance: VINORELBINE TARTRATE
     Dosage: VINORELBINE TARTRATE INJECTION 50MG + 0.9% SODIUM CHLORIDE INJECTION 125ML, SECOND CYCLE, DAY 1
     Route: 041
     Dates: start: 20200809, end: 20200809
  20. VINORELBINE [Suspect]
     Active Substance: VINORELBINE TARTRATE
     Dosage: DOSE REINTRODUCED.
     Route: 041
  21. PIRARUBICIN HYDROCHLORIDE [Suspect]
     Active Substance: PIRARUBICIN HYDROCHLORIDE
     Indication: Diffuse large B-cell lymphoma
     Dosage: FIRST CYCLE
     Route: 041
  22. PIRARUBICIN HYDROCHLORIDE [Suspect]
     Active Substance: PIRARUBICIN HYDROCHLORIDE
     Dosage: PIRARUBICIN HYDROCHLORIDE INJECTION 40MG + 5% GLUCOSE INJECTION 100ML, SECOND CYCLE, DAY 1
     Route: 041
     Dates: start: 20200809, end: 20200809
  23. PIRARUBICIN HYDROCHLORIDE [Suspect]
     Active Substance: PIRARUBICIN HYDROCHLORIDE
     Dosage: DOSE REINTRODUCED.
     Route: 041

REACTIONS (1)
  - Agranulocytosis [Recovering/Resolving]

NARRATIVE: CASE EVENT DATE: 20200904
